FAERS Safety Report 22655067 (Version 1)
Quarter: 2023Q2

REPORT INFORMATION
  Report Type: Spontaneous
  Country: US (occurrence: None)
  Receive Date: 20230628
  Receipt Date: 20230628
  Transmission Date: 20230722
  Serious: Yes (Other)
  Sender: FDA-Public Use
  Company Number: None

PATIENT
  Age: 9 Year
  Sex: Female
  Weight: 21.2 kg

DRUGS (3)
  1. MONTELUKAST [Suspect]
     Active Substance: MONTELUKAST SODIUM
     Indication: Asthma
     Dosage: FREQUENCY : DAILY;?
     Route: 048
     Dates: start: 20180426, end: 20230619
  2. Cyproheptadine (oral) [Concomitant]
     Dates: start: 20210524
  3. Fluticasone (nasal) [Concomitant]
     Dates: start: 20200514

REACTIONS (2)
  - Hallucination, auditory [None]
  - Self-injurious ideation [None]

NARRATIVE: CASE EVENT DATE: 20230619
